FAERS Safety Report 8991895 (Version 31)
Quarter: 2015Q4

REPORT INFORMATION
  Report Type: Spontaneous
  Country: CA (occurrence: CA)
  Receive Date: 20121231
  Receipt Date: 20151014
  Transmission Date: 20160305
  Serious: Yes (Hospitalization, Other)
  Sender: FDA-Public Use
  Company Number: CA-ROCHE-1167504

PATIENT
  Age: 32 Year
  Sex: Female
  Weight: 105 kg

DRUGS (23)
  1. XOLAIR [Suspect]
     Active Substance: OMALIZUMAB
     Route: 058
     Dates: start: 20130827
  2. XOLAIR [Suspect]
     Active Substance: OMALIZUMAB
     Route: 058
     Dates: start: 20151006
  3. SINGULAIR [Concomitant]
     Active Substance: MONTELUKAST SODIUM
  4. XOLAIR [Suspect]
     Active Substance: OMALIZUMAB
     Route: 058
     Dates: start: 20121203
  5. XOLAIR [Suspect]
     Active Substance: OMALIZUMAB
     Route: 058
     Dates: start: 20130729
  6. XOLAIR [Suspect]
     Active Substance: OMALIZUMAB
     Route: 058
     Dates: start: 20130924
  7. XOLAIR [Suspect]
     Active Substance: OMALIZUMAB
     Route: 058
     Dates: start: 20131105
  8. XOLAIR [Suspect]
     Active Substance: OMALIZUMAB
     Route: 058
     Dates: start: 20140602
  9. XOLAIR [Suspect]
     Active Substance: OMALIZUMAB
     Route: 058
     Dates: start: 20150331
  10. LOSEC [Concomitant]
     Active Substance: OMEPRAZOLE
  11. XOLAIR [Suspect]
     Active Substance: OMALIZUMAB
     Route: 058
     Dates: start: 20131119
  12. XOLAIR [Suspect]
     Active Substance: OMALIZUMAB
     Route: 058
     Dates: start: 20131231
  13. ALVESCO [Concomitant]
     Active Substance: CICLESONIDE
  14. XOLAIR [Suspect]
     Active Substance: OMALIZUMAB
     Route: 058
     Dates: start: 20150714
  15. XOLAIR [Suspect]
     Active Substance: OMALIZUMAB
     Indication: ASTHMA
     Route: 058
     Dates: start: 20091109
  16. XOLAIR [Suspect]
     Active Substance: OMALIZUMAB
     Route: 058
     Dates: start: 20130325
  17. XOLAIR [Suspect]
     Active Substance: OMALIZUMAB
     Route: 058
     Dates: start: 20140114
  18. XOLAIR [Suspect]
     Active Substance: OMALIZUMAB
     Route: 058
     Dates: start: 20140408
  19. XOLAIR [Suspect]
     Active Substance: OMALIZUMAB
     Route: 058
     Dates: start: 20150303
  20. MAXERAN [Concomitant]
     Active Substance: METOCLOPRAMIDE HYDROCHLORIDE
  21. DIPHENHYDRAMINE HYDROCHLORIDE. [Concomitant]
     Active Substance: DIPHENHYDRAMINE HYDROCHLORIDE
  22. ADVAIR HFA [Concomitant]
     Active Substance: FLUTICASONE PROPIONATE\SALMETEROL XINAFOATE
  23. XOLAIR [Suspect]
     Active Substance: OMALIZUMAB
     Route: 058
     Dates: start: 20100412

REACTIONS (29)
  - Nasopharyngitis [Unknown]
  - Cardiac disorder [Unknown]
  - Obstructive airways disorder [Recovering/Resolving]
  - Sinus congestion [Unknown]
  - Stress [Not Recovered/Not Resolved]
  - Gastroenteritis viral [Unknown]
  - Bradycardia [Unknown]
  - Gastrointestinal infection [Unknown]
  - Pharyngitis streptococcal [Unknown]
  - Vocal cord disorder [Unknown]
  - Pharyngitis [Unknown]
  - Headache [Unknown]
  - Injection site haemorrhage [Unknown]
  - Laryngitis [Unknown]
  - Blood pressure systolic decreased [Unknown]
  - Post procedural complication [Unknown]
  - Lower respiratory tract infection [Recovering/Resolving]
  - Ventricular extrasystoles [Recovered/Resolved]
  - Prinzmetal angina [Not Recovered/Not Resolved]
  - Coronary artery disease [Unknown]
  - Limb injury [Unknown]
  - Respiratory tract infection [Unknown]
  - Weight increased [Unknown]
  - Rotator cuff syndrome [Unknown]
  - Dyspnoea exertional [Unknown]
  - Body temperature decreased [Not Recovered/Not Resolved]
  - Food poisoning [Unknown]
  - Fatigue [Unknown]
  - Blood pressure diastolic increased [Unknown]

NARRATIVE: CASE EVENT DATE: 20110914
